FAERS Safety Report 9863667 (Version 2)
Quarter: 2014Q1

REPORT INFORMATION
  Report Type: Spontaneous
  Country: IE (occurrence: IE)
  Receive Date: 20140203
  Receipt Date: 20140305
  Transmission Date: 20141002
  Serious: Yes (Hospitalization)
  Sender: FDA-Public Use
  Company Number: US-ASTRAZENECA-2014SE06508

PATIENT
  Age: 0 Year
  Sex: Female

DRUGS (4)
  1. SYNAGIS [Suspect]
     Indication: CONGENITAL MULTIPLEX ARTHROGRYPOSIS
     Route: 030
     Dates: start: 20131119
  2. SYNAGIS [Suspect]
     Indication: CONGENITAL MULTIPLEX ARTHROGRYPOSIS
     Route: 030
     Dates: start: 201312
  3. SYNAGIS [Suspect]
     Indication: CONGENITAL MULTIPLEX ARTHROGRYPOSIS
     Route: 030
     Dates: start: 20140120
  4. ZANTAC [Concomitant]
     Indication: PRODUCT USED FOR UNKNOWN INDICATION
     Dosage: UNKNOWN
     Route: 065

REACTIONS (4)
  - Bronchiolitis [Unknown]
  - General physical health deterioration [Unknown]
  - Vomiting [Unknown]
  - Diarrhoea [Unknown]
